FAERS Safety Report 20123434 (Version 1)
Quarter: 2021Q4

REPORT INFORMATION
  Report Type: Report from Study
  Country: BR (occurrence: BR)
  Receive Date: 20211129
  Receipt Date: 20211129
  Transmission Date: 20220303
  Serious: Yes (Hospitalization)
  Sender: FDA-Public Use
  Company Number: BR-BIOGEN-2021BI01072402

PATIENT
  Age: 60 Year
  Sex: Female

DRUGS (3)
  1. TYSABRI [Suspect]
     Active Substance: NATALIZUMAB
     Indication: Multiple sclerosis
     Dosage: INFUSED OVER 1 HOUR
     Route: 042
     Dates: end: 202001
  2. ARCOXIA [Concomitant]
     Active Substance: ETORICOXIB
     Indication: Pain
     Route: 065
  3. CARBAMAZEPINE [Concomitant]
     Active Substance: CARBAMAZEPINE
     Indication: Seizure prophylaxis
     Route: 065
     Dates: start: 2016

REACTIONS (2)
  - Multiple sclerosis relapse [Recovered/Resolved]
  - Treatment failure [Recovered/Resolved]

NARRATIVE: CASE EVENT DATE: 20200101
